FAERS Safety Report 23077701 (Version 1)
Quarter: 2023Q4

REPORT INFORMATION
  Report Type: Spontaneous
  Country: US (occurrence: None)
  Receive Date: 20231018
  Receipt Date: 20231018
  Transmission Date: 20240110
  Serious: Yes (Death)
  Sender: FDA-Public Use
  Company Number: US-ROCHE-3437548

PATIENT

DRUGS (1)
  1. AVASTIN [Suspect]
     Active Substance: BEVACIZUMAB
     Indication: Diabetic retinal oedema
     Route: 050

REACTIONS (4)
  - Cardiomyopathy [Fatal]
  - Acute myocardial infarction [Fatal]
  - Off label use [Unknown]
  - Dilated cardiomyopathy [Fatal]
